FAERS Safety Report 11021481 (Version 1)
Quarter: 2015Q2

REPORT INFORMATION
  Report Type: Spontaneous
  Country: US (occurrence: US)
  Receive Date: 20150413
  Receipt Date: 20150413
  Transmission Date: 20150821
  Serious: Yes (Death, Hospitalization, Other)
  Sender: FDA-Public Use
  Company Number: US-GILEAD-2015-0140040

PATIENT
  Age: 53 Year
  Sex: Male

DRUGS (11)
  1. SIMEPREVIR [Concomitant]
     Active Substance: SIMEPREVIR
  2. FOLIC ACID. [Concomitant]
     Active Substance: FOLIC ACID
  3. FUROSEMIDE. [Concomitant]
     Active Substance: FUROSEMIDE
  4. MAG OXIDE [Concomitant]
     Active Substance: MAGNESIUM OXIDE
  5. SPIRONOLACTONE. [Concomitant]
     Active Substance: SPIRONOLACTONE
  6. SOVALDI [Suspect]
     Active Substance: SOFOSBUVIR
     Indication: PRODUCT USED FOR UNKNOWN INDICATION
     Dosage: 400 MG, UNK
     Route: 065
     Dates: start: 20140922, end: 20141218
  7. NADOLOL. [Concomitant]
     Active Substance: NADOLOL
  8. SIMETHICONE [Concomitant]
     Active Substance: DIMETHICONE\SILICON DIOXIDE\SIMETHICONE
  9. OMEPRAZOLE. [Concomitant]
     Active Substance: OMEPRAZOLE
  10. LACTULOSE. [Concomitant]
     Active Substance: LACTULOSE
  11. VITAMIN B12 [Concomitant]
     Active Substance: CYANOCOBALAMIN

REACTIONS (1)
  - Hepatic cirrhosis [Fatal]
